FAERS Safety Report 18846236 (Version 1)
Quarter: 2021Q1

REPORT INFORMATION
  Report Type: Spontaneous
  Country: AU (occurrence: AU)
  Receive Date: 20210204
  Receipt Date: 20210204
  Transmission Date: 20210419
  Serious: Yes (Hospitalization)
  Sender: FDA-Public Use
  Company Number: AU-STRIDES ARCOLAB LIMITED-2021SP001454

PATIENT
  Age: 37 Year
  Sex: Male

DRUGS (4)
  1. PREDNISOLONE. [Suspect]
     Active Substance: PREDNISOLONE
     Indication: RENAL AND PANCREAS TRANSPLANT
     Dosage: UNK
     Route: 065
  2. TACROLIMUS. [Suspect]
     Active Substance: TACROLIMUS
     Indication: RENAL AND PANCREAS TRANSPLANT
     Dosage: UNK
     Route: 065
  3. ANTITHYMOCYTE IMMUNOGLOBULIN [Suspect]
     Active Substance: THYMOCYTE IMMUNE GLOBULIN NOS
     Indication: RENAL AND PANCREAS TRANSPLANT
     Dosage: UNK
     Route: 065
  4. MYCOPHENOLATE MOFETIL. [Suspect]
     Active Substance: MYCOPHENOLATE MOFETIL
     Indication: RENAL AND PANCREAS TRANSPLANT
     Dosage: UNK
     Route: 065

REACTIONS (7)
  - Endocrine pancreatic disorder [Recovered/Resolved]
  - Hypoglycaemia [Recovered/Resolved]
  - Accidental overdose [Unknown]
  - Metabolic acidosis [Recovered/Resolved]
  - Renal impairment [Recovered/Resolved]
  - Off label use [Unknown]
  - COVID-19 [Recovered/Resolved]
